FAERS Safety Report 5221877-6 (Version None)
Quarter: 2007Q1

REPORT INFORMATION
  Report Type: 
  Country: None (occurrence: None)
  Receive Date: 20070126
  Receipt Date: 20070126
  Transmission Date: 20070707
  Serious: Yes (Hospitalization)
  Sender: FDA-Public Use
  Company Number: None

PATIENT
  Age: 69 Year
  Sex: Male
  Weight: 108 kg

DRUGS (4)
  1. WARFARIN SODIUM [Suspect]
     Dosage: 12.5MG Q,  THEN TAKE BY MOUTH; 12.5 MG DAILY FOR 6 DAYS THEN TAKE 15MG X 1 DAY
     Dates: start: 20061005, end: 20061013
  2. METOPROLOL TARTRATE [Concomitant]
  3. SIMVASTATIN [Concomitant]
  4. GLYBURIDE [Concomitant]

REACTIONS (1)
  - HAEMORRHAGE [None]
